FAERS Safety Report 12331695 (Version 2)
Quarter: 2016Q2

REPORT INFORMATION
  Report Type: Spontaneous
  Country: FR (occurrence: FR)
  Receive Date: 20160504
  Receipt Date: 20160511
  Transmission Date: 20160815
  Serious: Yes (Other)
  Sender: FDA-Public Use
  Company Number: FR-PFIZER INC-2016237588

PATIENT
  Age: 29 Year
  Sex: Male

DRUGS (2)
  1. ADVIL [Suspect]
     Active Substance: IBUPROFEN
     Indication: WISDOM TEETH REMOVAL
     Dosage: 400 MG, 3X/DAY
     Route: 048
     Dates: start: 20160328, end: 20160407
  2. PRONTALGINE [Suspect]
     Active Substance: ACETAMINOPHEN\AMOBARBITAL\CAFFEINE\CODEINE PHOSPHATE
     Indication: WISDOM TEETH REMOVAL
     Dosage: 2 DF, 3X/DAY
     Route: 048
     Dates: start: 20160328, end: 20160407

REACTIONS (1)
  - Palpitations [Recovered/Resolved]

NARRATIVE: CASE EVENT DATE: 20160407
